FAERS Safety Report 14498034 (Version 2)
Quarter: 2018Q1

REPORT INFORMATION
  Report Type: Report from Study
  Country: US (occurrence: US)
  Receive Date: 20180207
  Receipt Date: 20180306
  Transmission Date: 20180509
  Serious: Yes (Other)
  Sender: FDA-Public Use
  Company Number: US-ASTELLAS-2018US006350

PATIENT
  Age: 89 Year
  Sex: Female

DRUGS (2)
  1. ERLOTINIB [Suspect]
     Active Substance: ERLOTINIB
     Indication: LEUKAEMIA
     Dosage: UNK UNK, UNKNOWN FREQ.
     Route: 065
     Dates: start: 2018
  2. ERLOTINIB [Suspect]
     Active Substance: ERLOTINIB
     Indication: LUNG NEOPLASM MALIGNANT
     Dosage: UNK UNK, UNKNOWN FREQ.
     Route: 065
     Dates: start: 20170501, end: 20170516

REACTIONS (13)
  - Conjunctivitis [Recovered/Resolved]
  - Eye pain [Not Recovered/Not Resolved]
  - Clumsiness [Not Recovered/Not Resolved]
  - Dry eye [Not Recovered/Not Resolved]
  - Drug hypersensitivity [Recovered/Resolved]
  - Hypoacusis [Not Recovered/Not Resolved]
  - Glaucoma [Not Recovered/Not Resolved]
  - Blister [Not Recovered/Not Resolved]
  - Malignant neoplasm progression [Unknown]
  - Blindness [Recovered/Resolved]
  - Eye swelling [Unknown]
  - Emotional disorder [Unknown]
  - Erythema [Not Recovered/Not Resolved]

NARRATIVE: CASE EVENT DATE: 201705
